FAERS Safety Report 9501136 (Version 1)
Quarter: 2013Q3

REPORT INFORMATION
  Report Type: Spontaneous
  Country: JP (occurrence: JP)
  Receive Date: 20130905
  Receipt Date: 20130905
  Transmission Date: 20140515
  Serious: Yes (Other)
  Sender: FDA-Public Use
  Company Number: JP-GE HEALTHCARE MEDICAL DIAGNOSTICS-OMPQ-PR-1309S-1084

PATIENT
  Age: 68 Year
  Sex: Male

DRUGS (2)
  1. OMNIPAQUE [Suspect]
     Indication: SURGERY
     Route: 042
     Dates: start: 20130826, end: 20130826
  2. OMNIPAQUE [Suspect]
     Indication: DIAGNOSTIC PROCEDURE

REACTIONS (7)
  - Oxygen saturation decreased [Recovered/Resolved]
  - Respiratory rate decreased [Unknown]
  - Body temperature decreased [Unknown]
  - Blood pressure decreased [Recovered/Resolved]
  - Hypoaesthesia [Unknown]
  - Discomfort [Unknown]
  - Heart rate decreased [Recovered/Resolved]
